FAERS Safety Report 22180748 (Version 1)
Quarter: 2023Q2

REPORT INFORMATION
  Report Type: Spontaneous
  Country: US (occurrence: US)
  Receive Date: 20230406
  Receipt Date: 20230406
  Transmission Date: 20230722
  Serious: Yes (Hospitalization)
  Sender: FDA-Public Use
  Company Number: US-ROCHE-3321410

PATIENT
  Age: 77 Year
  Sex: Female

DRUGS (1)
  1. CAPECITABINE [Suspect]
     Active Substance: CAPECITABINE
     Indication: Colon cancer
     Dosage: MULTIPLE 1 DAYS (BID)?DAILY DOSE: 3000 MILLIGRAM
     Route: 048
     Dates: start: 20230107

REACTIONS (1)
  - Terminal ileitis [Unknown]

NARRATIVE: CASE EVENT DATE: 20230323
